FAERS Safety Report 7468395-2 (Version None)
Quarter: 2011Q2

REPORT INFORMATION
  Report Type: 
  Country: None (occurrence: None)
  Receive Date: 20110509
  Receipt Date: 20110504
  Transmission Date: 20111010
  Serious: Yes (Hospitalization)
  Sender: FDA-Public Use
  Company Number: US-B.I. PHARMACEUTICALS,INC./RIDGEFIELD-2011-BP-08911BP

PATIENT
  Age: 88 Year
  Sex: Female
  Weight: 56.7 kg

DRUGS (12)
  1. METOPROLOL TARTRATE [Concomitant]
     Dosage: 1 DAILY
  2. POT CHLORIDE [Concomitant]
     Dosage: 20 MG
  3. TYLENOL PM [Concomitant]
     Dosage: 50 MG
  4. METAMUCIL-2 [Concomitant]
     Dosage: DAILY
  5. ACETAMINOPHEN [Concomitant]
     Dosage: PRN
  6. MULTIPLE VITAMIN [Concomitant]
  7. IMODIUM [Concomitant]
     Indication: IRRITABLE BOWEL SYNDROME
     Dosage: PRN
  8. PRADAXA [Suspect]
     Indication: ATRIAL FIBRILLATION
     Dosage: 300 MG
     Route: 048
     Dates: start: 20101201, end: 20110310
  9. SYNTHROID [Concomitant]
     Dosage: 0.1 G
  10. DIGOXIN [Concomitant]
     Indication: ATRIAL FIBRILLATION
     Dosage: 0.125 MG
  11. AMOXICILLIN [Concomitant]
     Indication: DENTAL CARE
     Dosage: PRN
  12. FUROSEMIDE [Concomitant]
     Dosage: 40 MG

REACTIONS (4)
  - GASTROINTESTINAL HAEMORRHAGE [None]
  - HAEMOGLOBIN DECREASED [None]
  - LOWER GASTROINTESTINAL HAEMORRHAGE [None]
  - RECTAL HAEMORRHAGE [None]
